FAERS Safety Report 4680412-1 (Version None)
Quarter: 2005Q2

REPORT INFORMATION
  Report Type: 
  Country: None (occurrence: None)
  Receive Date: 20050601
  Receipt Date: 20050518
  Transmission Date: 20051028
  Serious: Yes (Hospitalization)
  Sender: FDA-Public Use
  Company Number: DE_050515974

PATIENT
  Age: 2 Year
  Sex: Female

DRUGS (2)
  1. ZYPREXA [Suspect]
     Dosage: 20 MG
     Dates: start: 20050511, end: 20050511
  2. FLUORETTE (SODIUM FLUORIDE) [Concomitant]

REACTIONS (3)
  - ACCIDENTAL DRUG INTAKE BY CHILD [None]
  - BLOOD PROLACTIN INCREASED [None]
  - MEDICATION ERROR [None]
